FAERS Safety Report 8599606-8 (Version None)
Quarter: 2012Q3

REPORT INFORMATION
  Report Type: 
  Country: None (occurrence: None)
  Receive Date: 20120816
  Receipt Date: 20120813
  Transmission Date: 20120928
  Serious: No
  Sender: FDA-Public Use
  Company Number: US-PFIZER INC-2012197578

PATIENT
  Age: 61 Year
  Sex: Male
  Weight: 68.027 kg

DRUGS (4)
  1. LYRICA [Suspect]
     Indication: FIBROMYALGIA
     Dosage: 50 MG, 3X/DAY
     Dates: start: 20120801
  2. THYROID TAB [Concomitant]
     Indication: HYPOTHYROIDISM
     Dosage: 60 MG, DAILY
  3. ZOLPIDEM TARTRATE [Concomitant]
     Indication: SLEEP DISORDER
     Dosage: 5MG TO 8MG, DAILY
  4. LYRICA [Suspect]
     Indication: NEURALGIA

REACTIONS (3)
  - HEADACHE [None]
  - SOMNOLENCE [None]
  - FATIGUE [None]
